FAERS Safety Report 8183632-7 (Version None)
Quarter: 2012Q1

REPORT INFORMATION
  Report Type: 
  Country: None (occurrence: None)
  Receive Date: 20120207
  Receipt Date: 20111011
  Transmission Date: 20120608
  Serious: Yes (Hospitalization)
  Sender: FDA-Public Use
  Company Number: KAD201110-000031

PATIENT
  Sex: Female
  Weight: 68.9467 kg

DRUGS (6)
  1. PROMETHAZINE [Concomitant]
  2. CELEXA [Concomitant]
  3. PEGASYS [Suspect]
     Indication: HEPATITIS C
     Dosage: 180 MICROGRAMS WEEKLY
     Dates: start: 20110629, end: 20110922
  4. CYMBALTA [Concomitant]
  5. RIBAVIRIN [Suspect]
     Indication: HEPATITIS C
     Dosage: 1000 MG DAILY, 600 MG AM AND 400 MG PM
     Dates: start: 20110727, end: 20110922
  6. DEPAKOTE [Concomitant]

REACTIONS (2)
  - PSYCHIATRIC SYMPTOM [None]
  - SUICIDE ATTEMPT [None]
